FAERS Safety Report 7466167-6 (Version None)
Quarter: 2011Q2

REPORT INFORMATION
  Report Type: 
  Country: None (occurrence: None)
  Receive Date: 20110509
  Receipt Date: 20110426
  Transmission Date: 20111010
  Serious: Yes (Other)
  Sender: FDA-Public Use
  Company Number: PHHY2011JP36770

PATIENT
  Age: 70 Year
  Sex: Male

DRUGS (2)
  1. AFINITOR [Suspect]
     Route: 048
     Dates: start: 20100712
  2. SUNITINIB MALATE [Suspect]
     Dates: start: 20100108

REACTIONS (3)
  - TUMOUR HAEMORRHAGE [None]
  - SMALL INTESTINAL HAEMORRHAGE [None]
  - GASTRIC HAEMORRHAGE [None]
